FAERS Safety Report 4424201-1 (Version None)
Quarter: 2004Q3

REPORT INFORMATION
  Report Type: 
  Country: None (occurrence: None)
  Receive Date: 20040812
  Receipt Date: 20040804
  Transmission Date: 20050211
  Serious: Yes (Hospitalization)
  Sender: FDA-Public Use
  Company Number: 200412951FR

PATIENT
  Age: 40 Year
  Sex: Female

DRUGS (17)
  1. COLISTIN SULFATE [Suspect]
  2. LASILIX 40 MG [Suspect]
     Dosage: DOSE: 40-0-0
     Route: 048
  3. MAALOX [Suspect]
     Route: 048
  4. NEBCIN [Suspect]
  5. FORTUM [Suspect]
  6. OMEPRAZOLE [Suspect]
     Route: 048
  7. ACTRAPID [Concomitant]
     Dosage: DOSE: 20-30-0; DOSE UNIT: UNITS
  8. INSULATARD NPH HUMAN [Concomitant]
     Dosage: DOSE: 0-0-20; DOSE UNIT: UNITS
  9. CREON [Concomitant]
     Route: 048
  10. EUCALCIC [Concomitant]
  11. UN-ALFA [Concomitant]
     Route: 048
  12. PREDNISONE TAB [Concomitant]
     Dosage: DOSE: 20-0-0
  13. PROGRAF [Concomitant]
     Dosage: DOSE: 3-0-3
  14. CELLCEPT [Concomitant]
  15. VFEND [Concomitant]
  16. NEORECORMON [Concomitant]
  17. RIFADIN [Concomitant]
     Dates: start: 20030301

REACTIONS (9)
  - DIALYSIS [None]
  - DYSPNOEA EXERTIONAL [None]
  - HAEMOTHORAX [None]
  - POST PROCEDURAL COMPLICATION [None]
  - PURULENCE [None]
  - RENAL FAILURE ACUTE [None]
  - RENAL TUBULAR NECROSIS [None]
  - RESPIRATORY FAILURE [None]
  - SHOCK HAEMORRHAGIC [None]
